FAERS Safety Report 13129118 (Version 1)
Quarter: 2017Q1

REPORT INFORMATION
  Report Type: Spontaneous
  Country: US (occurrence: US)
  Receive Date: 20170118
  Receipt Date: 20170118
  Transmission Date: 20170428
  Serious: Yes (Disabling)
  Sender: FDA-Public Use
  Company Number: None

PATIENT
  Age: 37 Year
  Sex: Male
  Weight: 73.94 kg

DRUGS (7)
  1. NATURALLY BETTER BLOCKBUSTER ALL CLEAR [Concomitant]
  2. DOXYCYCLINE HYCLATE. [Suspect]
     Active Substance: DOXYCYCLINE HYCLATE
     Indication: CYST
     Route: 048
     Dates: start: 20161028, end: 20161030
  3. JARROW FORMULAS VENOUS OPTIMIZER [Concomitant]
  4. LIFE EXTENSION EYE PRESSURE SUPPORT [Concomitant]
  5. NATURE^S WAY HORSE CHESTNUT STANDARDIZED [Concomitant]
  6. BR. NUTRITION ASHWAGANDHA EXTRA STRENGTH [Concomitant]
  7. NEWLIVER DETOXIFIER + REGENERATOR [Concomitant]

REACTIONS (3)
  - Cognitive disorder [None]
  - Benign intracranial hypertension [None]
  - Depression [None]

NARRATIVE: CASE EVENT DATE: 20161030
